FAERS Safety Report 14932470 (Version 1)
Quarter: 2018Q2

REPORT INFORMATION
  Report Type: Report from Study
  Country: US (occurrence: US)
  Receive Date: 20180524
  Receipt Date: 20180524
  Transmission Date: 20180711
  Serious: No
  Sender: FDA-Public Use
  Company Number: US-ACADIA PHARMACEUTICALS INC.-ACA-2018-007421

PATIENT
  Sex: Male
  Weight: 65 kg

DRUGS (1)
  1. NUPLAZID [Suspect]
     Active Substance: PIMAVANSERIN TARTRATE
     Indication: PARKINSON^S DISEASE
     Dosage: 34 MG, QD
     Route: 048

REACTIONS (11)
  - Dementia Alzheimer^s type [Unknown]
  - Disease progression [Unknown]
  - Abnormal behaviour [Unknown]
  - Depression [Unknown]
  - Aggression [Unknown]
  - Crying [Unknown]
  - Delusion [Unknown]
  - Thinking abnormal [Unknown]
  - Derealisation [Unknown]
  - Hallucination [Unknown]
  - Confusional state [Unknown]
